FAERS Safety Report 8354861-4 (Version None)
Quarter: 2012Q2

REPORT INFORMATION
  Report Type: 
  Country: None (occurrence: None)
  Receive Date: 20120511
  Receipt Date: 20120505
  Transmission Date: 20120825
  Serious: Yes (Other)
  Sender: FDA-Public Use
  Company Number: BR-JNJFOC-20120507874

PATIENT
  Sex: Male
  Weight: 70 kg

DRUGS (3)
  1. ROGAINE [Suspect]
     Route: 061
     Dates: start: 20120101, end: 20120101
  2. UNKNOWN MEDICATION [Concomitant]
  3. ROGAINE [Suspect]
     Indication: HAIR GROWTH ABNORMAL
     Route: 061
     Dates: start: 20120101, end: 20120401

REACTIONS (2)
  - UNDERDOSE [None]
  - ERECTILE DYSFUNCTION [None]
